FAERS Safety Report 9674838 (Version 2)
Quarter: 2013Q4

REPORT INFORMATION
  Report Type: Spontaneous
  Country: GB (occurrence: GB)
  Receive Date: 20131107
  Receipt Date: 20131224
  Transmission Date: 20140711
  Serious: Yes (Other)
  Sender: FDA-Public Use
  Company Number: PHHO2013GB014237

PATIENT
  Age: 45 Year
  Sex: Male
  Weight: 78 kg

DRUGS (1)
  1. CICLOSPORIN [Suspect]
     Indication: PSORIASIS
     Dosage: 100 MG, BID
     Route: 048
     Dates: start: 20130606, end: 20131025

REACTIONS (1)
  - Memory impairment [Recovered/Resolved]
